FAERS Safety Report 4547227-6 (Version None)
Quarter: 2005Q1

REPORT INFORMATION
  Report Type: 
  Country: None (occurrence: None)
  Receive Date: 20050105
  Receipt Date: 20041222
  Transmission Date: 20050727
  Serious: Yes (Death)
  Sender: FDA-Public Use
  Company Number: WAES 0311GBR00154

PATIENT
  Age: 77 Year
  Sex: Female

DRUGS (1)
  1. VIOXX [Suspect]
     Indication: NEOPLASM PROPHYLAXIS
     Dosage: 25 MG/ DAILY PO
     Route: 048
     Dates: start: 20020925, end: 20031118

REACTIONS (3)
  - MALIGNANT NEOPLASM PROGRESSION [None]
  - MYOCARDIAL INFARCTION [None]
  - OESOPHAGEAL CARCINOMA [None]
